FAERS Safety Report 7583226-8 (Version None)
Quarter: 2011Q2

REPORT INFORMATION
  Report Type: 
  Country: None (occurrence: None)
  Receive Date: 20110627
  Receipt Date: 20110627
  Transmission Date: 20111010
  Serious: Yes (Hospitalization)
  Sender: FDA-Public Use
  Company Number: None

PATIENT
  Age: 75 Year
  Sex: Male
  Weight: 104.3 kg

DRUGS (14)
  1. FUROSEMIDE [Concomitant]
  2. LIPITOR [Concomitant]
  3. CITALOPRAM HYDROBROMIDE [Concomitant]
  4. PRAZOSIN HCL [Concomitant]
  5. SUPER DHA [Concomitant]
  6. LISINOPRIL [Suspect]
     Indication: RENAL FAILURE CHRONIC
     Dosage: 40 MG BID PO
     Route: 048
     Dates: start: 20100729, end: 20110530
  7. LISINOPRIL [Suspect]
     Indication: HYPERTENSION
     Dosage: 40 MG BID PO
     Route: 048
     Dates: start: 20100729, end: 20110530
  8. CALCIUM CARBONATE [Concomitant]
  9. FERROUS SULFATE TAB [Concomitant]
  10. FENOFIBRATE [Concomitant]
  11. AMLODIPINE [Concomitant]
  12. NOVOLIN N [Concomitant]
  13. ASPIRIN [Concomitant]
  14. NOVOLIN R [Concomitant]

REACTIONS (3)
  - PRURITUS [None]
  - SWELLING [None]
  - LIP SWELLING [None]
